FAERS Safety Report 5660621-5 (Version None)
Quarter: 2008Q1

REPORT INFORMATION
  Report Type: 
  Country: None (occurrence: None)
  Receive Date: 20080311
  Receipt Date: 20080305
  Transmission Date: 20080703
  Serious: Yes (Other)
  Sender: FDA-Public Use
  Company Number: US-BAYER-200714782NA

PATIENT
  Age: 30 Year
  Sex: Female
  Weight: 63 kg

DRUGS (3)
  1. MIRENA [Suspect]
     Route: 015
     Dates: start: 20070629, end: 20070919
  2. SYNTHROID [Concomitant]
     Indication: HYPOTHYROIDISM
  3. REPLIVA [Concomitant]
     Indication: ANAEMIA

REACTIONS (4)
  - AUTOIMMUNE DISORDER [None]
  - FACIAL SPASM [None]
  - INFLUENZA LIKE ILLNESS [None]
  - PAIN [None]
